FAERS Safety Report 20686343 (Version 1)
Quarter: 2022Q2

REPORT INFORMATION
  Report Type: Spontaneous
  Country: US (occurrence: US)
  Receive Date: 20220407
  Receipt Date: 20220407
  Transmission Date: 20220721
  Serious: No
  Sender: FDA-Public Use
  Company Number: US-JAZZ-2022-US-007599

PATIENT
  Sex: Female

DRUGS (6)
  1. SUNOSI [Suspect]
     Active Substance: SOLRIAMFETOL
     Indication: Narcolepsy
     Dosage: 1 DOSAGE FORM, QD
     Route: 048
     Dates: start: 20211213
  2. ORTHO TRI CYCLEN LO [Concomitant]
     Active Substance: ETHINYL ESTRADIOL\NORGESTIMATE
     Indication: Product used for unknown indication
     Dosage: 1 DOSAGE FORM, QD, 0.18/0.215/0.25 MCG
     Route: 048
     Dates: start: 20220203
  3. LEXAPRO [Concomitant]
     Active Substance: ESCITALOPRAM OXALATE
     Indication: Product used for unknown indication
     Dosage: 1 DOSAGE FORM, QD
     Route: 048
     Dates: start: 20220119
  4. PROVIGIL [Concomitant]
     Active Substance: MODAFINIL
     Indication: Product used for unknown indication
     Dosage: 1 DOSAGE FORM, QD, 1/2 IN MORNING FOR 1 WEEK AND THEN INCREASE TO FULL TAB
     Route: 048
     Dates: start: 20211116
  5. SULFACETAMIDE SODIUM [Concomitant]
     Active Substance: SULFACETAMIDE SODIUM
     Indication: Acne
     Dosage: 10% EX LOTION, PLACE 1 APPLICATION TOPICALLY EVERY NIGHT AT BEDTIME
     Route: 061
     Dates: start: 20211019
  6. TAZAROTENE [Concomitant]
     Active Substance: TAZAROTENE
     Indication: Acne
     Dosage: EX CREAM, APPLY EVERY NIGHT TO FACE FOR ACNE
     Dates: start: 20211019

REACTIONS (1)
  - Drug intolerance [Unknown]
